FAERS Safety Report 25111543 (Version 1)
Quarter: 2025Q1

REPORT INFORMATION
  Report Type: Spontaneous
  Country: US (occurrence: US)
  Receive Date: 20250324
  Receipt Date: 20250324
  Transmission Date: 20250409
  Serious: Yes (Other)
  Sender: NOVARTIS
  Company Number: US-002147023-NVSC2025US045558

PATIENT
  Age: 35 Year
  Sex: Male

DRUGS (1)
  1. EGATEN [Suspect]
     Active Substance: TRICLABENDAZOLE
     Indication: Fascioliasis
     Route: 065

REACTIONS (2)
  - Biliary obstruction [Unknown]
  - Jaundice [Unknown]
